FAERS Safety Report 5749966-8 (Version None)
Quarter: 2008Q2

REPORT INFORMATION
  Report Type: 
  Country: None (occurrence: None)
  Receive Date: 20080527
  Receipt Date: 20080516
  Transmission Date: 20081010
  Serious: Yes (Congenital Anomaly)
  Sender: FDA-Public Use
  Company Number: GB-ASTRAZENECA-2008GB00949

PATIENT

DRUGS (1)
  1. SEROQUEL [Suspect]
     Indication: BIPOLAR DISORDER
     Dosage: 700 MG MOTHER STARTED TREATMENT OVER THREE YEARS AGO
     Route: 064

REACTIONS (3)
  - CLEFT PALATE [None]
  - DRUG EXPOSURE DURING PREGNANCY [None]
  - FALLOT'S TETRALOGY [None]
